FAERS Safety Report 10874842 (Version 1)
Quarter: 2015Q1

REPORT INFORMATION
  Report Type: Spontaneous
  Country: US (occurrence: US)
  Receive Date: 20150227
  Receipt Date: 20150227
  Transmission Date: 20150721
  Serious: Yes (Death)
  Sender: FDA-Public Use
  Company Number: US-BANPHARM-20153532

PATIENT
  Age: 28 Year
  Sex: Male

DRUGS (6)
  1. DIPHENHYDRAMINE UNKNOWN PRODUCT [Suspect]
     Active Substance: DIPHENHYDRAMINE
  2. COCAINE [Suspect]
     Active Substance: COCAINE
  3. HYDROCODONE [Suspect]
     Active Substance: HYDROCODONE
  4. ETHANOL [Suspect]
     Active Substance: ALCOHOL
  5. METHADONE [Suspect]
     Active Substance: METHADONE HYDROCHLORIDE
  6. ALPRAZOLAM. [Suspect]
     Active Substance: ALPRAZOLAM

REACTIONS (2)
  - Drug abuse [Fatal]
  - Exposure via ingestion [None]
